FAERS Safety Report 7609090-6 (Version None)
Quarter: 2011Q3

REPORT INFORMATION
  Report Type: 
  Country: None (occurrence: None)
  Receive Date: 20110714
  Receipt Date: 20110711
  Transmission Date: 20111222
  Serious: Yes (Other)
  Sender: FDA-Public Use
  Company Number: US-PFIZER INC-2011147656

PATIENT
  Sex: Male
  Weight: 77.098 kg

DRUGS (21)
  1. DILANTIN [Suspect]
     Indication: CONVULSION
     Dosage: 100 MG, 1X/DAY
     Route: 048
  2. NORVASC [Concomitant]
     Indication: HYPERTENSION
     Dosage: 10 MG, 1X/DAY
  3. NORVASC [Concomitant]
     Dosage: 10 MG, DAILY
     Route: 048
  4. LOSARTAN [Concomitant]
     Indication: HYPERTENSION
     Dosage: 100 MG, 1X/DAY
  5. METFORMIN HYDROCHLORIDE/SITAGLIPTIN [Concomitant]
     Dosage: 50/1000 MG, DAILY
     Route: 048
  6. ADVAIR DISKUS 100/50 [Concomitant]
     Indication: CHRONIC OBSTRUCTIVE PULMONARY DISEASE
     Dosage: 250/50 MCG, 2X/DAY
     Route: 055
  7. OMEPRAZOLE [Concomitant]
     Indication: DYSPEPSIA
     Dosage: 20 MG, 1X/DAY
  8. SPIRIVA [Concomitant]
     Indication: CHRONIC OBSTRUCTIVE PULMONARY DISEASE
     Dosage: UNK, 1X/DAY
     Route: 055
  9. METOPROLOL [Concomitant]
     Indication: HYPERTENSION
     Dosage: 50 MG, 2X/DAY
  10. LOSARTAN [Concomitant]
     Dosage: 100 MG, DAILY
  11. PRAVASTATIN [Concomitant]
     Indication: HYPERTENSION
     Dosage: 40 MG, 1X/DAY
  12. DILANTIN [Suspect]
     Dosage: 100 MG, 3X/DAY
  13. UROXATRAL [Concomitant]
     Indication: PROSTATOMEGALY
     Dosage: 10 MG, 1X/DAY
  14. METFORMIN HYDROCHLORIDE/SITAGLIPTIN [Concomitant]
     Indication: TYPE 1 DIABETES MELLITUS
     Dosage: 50/100 MG, 1X/DAY
  15. ZANTAC [Concomitant]
     Indication: DYSPEPSIA
     Dosage: 150 MG, 1X/DAY
     Route: 048
  16. DILANTIN [Suspect]
     Dosage: 100 MG, 2X/DAY
     Dates: start: 20030101
  17. DILANTIN [Suspect]
     Dosage: 100 MG, 4X/DAY
     Route: 048
  18. AVODART [Concomitant]
     Indication: PROSTATOMEGALY
     Dosage: 0.5 MG, 1X/DAY
  19. ACETYLSALICYLIC ACID [Concomitant]
     Indication: ANTICOAGULANT THERAPY
     Dosage: 81 MG, 1X/DAY
  20. ACETYLSALICYLIC ACID [Concomitant]
     Dosage: 81 MG, DAILY
  21. GLIPIZIDE [Concomitant]
     Indication: TYPE 1 DIABETES MELLITUS
     Dosage: 10 MG, 2X/DAY

REACTIONS (5)
  - FALL [None]
  - ANTICONVULSANT DRUG LEVEL DECREASED [None]
  - ANTICONVULSANT DRUG LEVEL INCREASED [None]
  - BALANCE DISORDER [None]
  - ANKLE FRACTURE [None]
